FAERS Safety Report 9456012 (Version 1)
Quarter: 2013Q3

REPORT INFORMATION
  Report Type: Report from Study
  Country: LB (occurrence: LB)
  Receive Date: 20130813
  Receipt Date: 20130813
  Transmission Date: 20140515
  Serious: Yes (Other)
  Sender: FDA-Public Use
  Company Number: LB-SANOFI-AVENTIS-2013SA079950

PATIENT
  Age: 62 Year
  Sex: Female

DRUGS (8)
  1. LANTUS SOLOSTAR [Suspect]
     Indication: DIABETES MELLITUS
     Dosage: DOSE:20 UNIT(S)
     Route: 058
     Dates: start: 2012
  2. SOLOSTAR [Concomitant]
     Dates: start: 2012
  3. GALVUSMET [Concomitant]
     Indication: DIABETES MELLITUS
     Route: 048
  4. DIAMICRON [Concomitant]
     Indication: DIABETES MELLITUS
     Route: 048
  5. PRAXILENE [Concomitant]
  6. LESCOL [Concomitant]
     Route: 048
  7. MONOCINQUE [Concomitant]
  8. ASPICOT [Concomitant]
     Route: 048

REACTIONS (1)
  - Herpes zoster [Recovering/Resolving]
